FAERS Safety Report 12762624 (Version 1)
Quarter: 2016Q3

REPORT INFORMATION
  Report Type: Spontaneous
  Country: AU (occurrence: AU)
  Receive Date: 20160920
  Receipt Date: 20160920
  Transmission Date: 20161109
  Serious: Yes (Hospitalization)
  Sender: FDA-Public Use
  Company Number: AU-SYNTHON BV-NL01PV16_41799

PATIENT
  Age: 71 Year
  Sex: Male

DRUGS (6)
  1. TAMSULOSIN [Suspect]
     Active Substance: TAMSULOSIN
     Indication: HAEMATURIA
  2. DUTASTERIDE. [Suspect]
     Active Substance: DUTASTERIDE
     Indication: HAEMATURIA
  3. TAMSULOSIN [Suspect]
     Active Substance: TAMSULOSIN
     Indication: BENIGN PROSTATIC HYPERPLASIA
  4. DUTASTERIDE. [Suspect]
     Active Substance: DUTASTERIDE
     Indication: LOWER URINARY TRACT SYMPTOMS
     Dosage: UNK
  5. TAMSULOSIN [Suspect]
     Active Substance: TAMSULOSIN
     Indication: LOWER URINARY TRACT SYMPTOMS
     Dosage: UNK
  6. DUTASTERIDE. [Suspect]
     Active Substance: DUTASTERIDE
     Indication: BENIGN PROSTATIC HYPERPLASIA

REACTIONS (2)
  - Lower urinary tract symptoms [Recovered/Resolved]
  - Condition aggravated [Recovered/Resolved]
